FAERS Safety Report 15483673 (Version 1)
Quarter: 2018Q4

REPORT INFORMATION
  Report Type: Spontaneous
  Country: US (occurrence: US)
  Receive Date: 20181003
  Receipt Date: 20181003
  Transmission Date: 20190205
  Serious: No
  Sender: FDA-Public Use
  Company Number: None

PATIENT
  Age: 48 Year
  Sex: Female

DRUGS (1)
  1. STELARA [Suspect]
     Active Substance: USTEKINUMAB
     Indication: PSORIATIC ARTHROPATHY
     Dosage: INJECT 45MG SUBCUTANEOUSLY ON WEEK0 AND WEEK  4 THEN EVERY 12 WEEKS   AS DIRECTED
     Route: 058
     Dates: start: 201806

REACTIONS (1)
  - Pancreatitis [None]
